FAERS Safety Report 7387418-2 (Version None)
Quarter: 2011Q1

REPORT INFORMATION
  Report Type: 
  Country: None (occurrence: None)
  Receive Date: 20110331
  Receipt Date: 20110318
  Transmission Date: 20110831
  Serious: Yes (Disabling)
  Sender: FDA-Public Use
  Company Number: ES-CELGENEUS-144-21880-11021648

PATIENT
  Sex: Female

DRUGS (8)
  1. TROMALYT [Concomitant]
     Route: 065
  2. DOMIX [Concomitant]
     Route: 065
  3. CHOLECALCIFEROL [Concomitant]
     Route: 065
  4. REVLIMID [Suspect]
     Indication: MULTIPLE MYELOMA
     Route: 048
     Dates: start: 20100111, end: 20110129
  5. CYMBALTA [Concomitant]
     Route: 065
  6. LEVOTHYROXINE SODIUM [Concomitant]
     Route: 065
  7. CALCIUM [Concomitant]
     Route: 065
  8. PANTECTA [Concomitant]
     Route: 065

REACTIONS (1)
  - LEUKOCYTOCLASTIC VASCULITIS [None]
